FAERS Safety Report 5468831-7 (Version None)
Quarter: 2007Q3

REPORT INFORMATION
  Report Type: 
  Country: None (occurrence: None)
  Receive Date: 20070926
  Receipt Date: 20070914
  Transmission Date: 20080115
  Serious: Yes (Other)
  Sender: FDA-Public Use
  Company Number: US-PFIZER INC-2007076937

PATIENT
  Sex: Female
  Weight: 76.7 kg

DRUGS (5)
  1. CHANTIX [Suspect]
     Indication: SMOKING CESSATION THERAPY
     Route: 048
  2. VALIUM [Concomitant]
  3. AMITRIPTYLINE HCL [Concomitant]
  4. LISINOPRIL AND HYDROCHLOROTHIAZIDE [Concomitant]
  5. CITALOPRAM HYDROBROMIDE [Concomitant]

REACTIONS (4)
  - GLOSSODYNIA [None]
  - LIP SWELLING [None]
  - TONGUE BLISTERING [None]
  - TONGUE DISORDER [None]
